FAERS Safety Report 14805765 (Version 1)
Quarter: 2018Q2

REPORT INFORMATION
  Report Type: Report from Study
  Country: None (occurrence: US)
  Receive Date: 20180425
  Receipt Date: 20180425
  Transmission Date: 20180711
  Serious: Yes (Death)
  Sender: FDA-Public Use
  Company Number: US-BIOVITRUM-2018US0415

PATIENT
  Age: 71 Year
  Sex: Male

DRUGS (3)
  1. KINERET [Suspect]
     Active Substance: ANAKINRA
     Indication: METASTASES TO LUNG
  2. KINERET [Suspect]
     Active Substance: ANAKINRA
     Indication: COLON CANCER
  3. KINERET [Suspect]
     Active Substance: ANAKINRA
     Indication: METASTASES TO LIVER
     Dosage: FREQUENCY: EVERY OTHER DAY
     Route: 058
     Dates: start: 20170915

REACTIONS (1)
  - Death [Fatal]

NARRATIVE: CASE EVENT DATE: 20180131
